FAERS Safety Report 13158522 (Version 1)
Quarter: 2017Q1

REPORT INFORMATION
  Report Type: Spontaneous
  Country: US (occurrence: US)
  Receive Date: 20170127
  Receipt Date: 20170127
  Transmission Date: 20170428
  Serious: No
  Sender: FDA-Public Use
  Company Number: US-BAYER-2017-016216

PATIENT
  Age: 6 Year
  Sex: Female
  Weight: 18 kg

DRUGS (2)
  1. CLARITIN [Suspect]
     Active Substance: LORATADINE
     Indication: ANTIALLERGIC THERAPY
     Dosage: 1 DF, QD
     Route: 048
     Dates: start: 20170124
  2. CLARITIN [Suspect]
     Active Substance: LORATADINE
     Indication: DYSPNOEA
     Dosage: 4 DF, ONCE
     Route: 048
     Dates: start: 20170125, end: 20170125

REACTIONS (2)
  - Accidental exposure to product by child [Recovered/Resolved]
  - Product use issue [Recovered/Resolved]

NARRATIVE: CASE EVENT DATE: 20170124
